FAERS Safety Report 25993224 (Version 1)
Quarter: 2025Q4

REPORT INFORMATION
  Report Type: Spontaneous
  Country: CA (occurrence: CA)
  Receive Date: 20251104
  Receipt Date: 20251104
  Transmission Date: 20260118
  Serious: Yes (Other)
  Sender: CELLTRION
  Company Number: CA-CELLTRION INC.-2025CA031102

PATIENT

DRUGS (8)
  1. OMLYCLO [Suspect]
     Active Substance: OMALIZUMAB-IGEC
     Indication: Chronic spontaneous urticaria
     Dosage: OMLYCLO - MAINTENANCE - 300 MG - SC  (SUBCUTANEOUS) EVERY 2 WEEKS
     Route: 058
     Dates: start: 20250822
  2. OMLYCLO [Suspect]
     Active Substance: OMALIZUMAB-IGEC
     Dosage: 300MG Q2 WEEKS
     Route: 058
     Dates: start: 20250909
  3. OMLYCLO [Suspect]
     Active Substance: OMALIZUMAB-IGEC
     Dosage: OCT 2025 / 300MG Q2W
     Route: 058
  4. OMLYCLO [Suspect]
     Active Substance: OMALIZUMAB-IGEC
     Dosage: MAINTENANCE - 300 MG - SC  (SUBCUTANEOUS) EVERY 2 WEEKS
     Route: 058
     Dates: start: 20250822
  5. OMLYCLO [Suspect]
     Active Substance: OMALIZUMAB-IGEC
     Dosage: MAINTENANCE - 300 MG - SC  (SUBCUTANEOUS) EVERY 2 WEEKS (3RD INJECTION)
     Route: 058
     Dates: start: 20251007
  6. OMLYCLO [Suspect]
     Active Substance: OMALIZUMAB-IGEC
     Dosage: MAINTENANCE - 300 MG - SC  (SUBCUTANEOUS) EVERY 2 WEEKS  (4TH INJECTION)
     Route: 058
     Dates: start: 20251021
  7. DIPHENHYDRAMINE [Concomitant]
     Active Substance: DIPHENHYDRAMINE
     Indication: Product used for unknown indication
     Dosage: UNK
     Route: 065
  8. CETIRIZINE [Concomitant]
     Active Substance: CETIRIZINE HYDROCHLORIDE
     Indication: Product used for unknown indication
     Dosage: UNK
     Route: 065

REACTIONS (7)
  - Symptom recurrence [Unknown]
  - Off label use [Unknown]
  - Inappropriate schedule of product administration [Unknown]
  - Product distribution issue [Unknown]
  - Product dose omission issue [Unknown]
  - Product prescribing issue [Unknown]
  - Product dose omission issue [Unknown]

NARRATIVE: CASE EVENT DATE: 20250822
